FAERS Safety Report 6240009-9 (Version None)
Quarter: 2009Q2

REPORT INFORMATION
  Report Type: 
  Country: None (occurrence: None)
  Receive Date: 20090619
  Receipt Date: 20090605
  Transmission Date: 20091009
  Serious: Yes (Hospitalization)
  Sender: FDA-Public Use
  Company Number: 8044081

PATIENT
  Age: 45 Year
  Sex: Female
  Weight: 117.1 kg

DRUGS (13)
  1. CERTOLIZUMAB [Suspect]
     Indication: RHEUMATOID ARTHRITIS
     Dosage: 400 MG 1/2W SC; 200 MG 1/2W SC
     Route: 058
     Dates: start: 20090102, end: 20090201
  2. CERTOLIZUMAB [Suspect]
     Indication: RHEUMATOID ARTHRITIS
     Dosage: 400 MG 1/2W SC; 200 MG 1/2W SC
     Route: 058
     Dates: start: 20090201, end: 20090409
  3. PLACEBO [Suspect]
     Indication: RHEUMATOID ARTHRITIS
     Dosage: 1/2W SC
     Route: 058
     Dates: start: 20090102, end: 20090409
  4. METHOTREXATE [Concomitant]
  5. FOLIC ACID [Concomitant]
  6. JANUVIA [Concomitant]
  7. PRILOSEC [Concomitant]
  8. LISENOPRIL [Concomitant]
  9. ACTOS [Concomitant]
  10. INSULIN [Concomitant]
  11. LORTAB [Concomitant]
  12. POTASSIUM CHLORIDE [Concomitant]
  13. VITAMIN (VISION FORMULA) [Concomitant]

REACTIONS (16)
  - ABSCESS LIMB [None]
  - BLOOD CREATININE DECREASED [None]
  - BLOOD GLUCOSE INCREASED [None]
  - BLOOD POTASSIUM DECREASED [None]
  - BLOOD SODIUM DECREASED [None]
  - BLOOD UREA NITROGEN/CREATININE RATIO INCREASED [None]
  - CELLULITIS [None]
  - HAEMATOCRIT DECREASED [None]
  - HYPERKERATOSIS [None]
  - LYMPHOCYTE COUNT DECREASED [None]
  - MONOCYTE COUNT INCREASED [None]
  - NECROSIS [None]
  - NEUTROPHIL COUNT INCREASED [None]
  - PCO2 DECREASED [None]
  - RED BLOOD CELL COUNT DECREASED [None]
  - STAPHYLOCOCCAL INFECTION [None]
